FAERS Safety Report 8756302 (Version 1)
Quarter: 2012Q4

REPORT INFORMATION
  Report Type: 
  Country: US (occurrence: US)
  Receive Date: 20120828
  Receipt Date: 20120828
  Transmission Date: 20130627
  Serious: No
  Sender: FDA-Public Use
  Company Number: US-B.I. PHARMACEUTICALS,INC./RIDGEFIELD-2010-BP-10574BP

PATIENT
  Age: 75 None
  Sex: Female

DRUGS (15)
  1. MIRAPEX [Suspect]
     Indication: RESTLESS LEGS SYNDROME
     Dosage: 0.5 mg
     Route: 048
     Dates: start: 2009
  2. ASA [Concomitant]
     Indication: CEREBROVASCULAR ACCIDENT
     Route: 048
  3. ASA [Concomitant]
     Indication: CEREBROVASCULAR ACCIDENT PROPHYLAXIS
  4. LORAZEPAM [Concomitant]
     Indication: ANXIETY
     Route: 048
  5. MORPHINE [Concomitant]
     Indication: PAIN
  6. DILTIAZEM [Concomitant]
     Indication: HYPERTENSION
  7. HYDROCHLOROTHIAZIDE [Concomitant]
     Indication: HYPERTENSION
  8. SERTALINE [Concomitant]
     Indication: DEPRESSION
     Route: 048
  9. SIMVASTIN [Concomitant]
     Indication: BLOOD CHOLESTEROL INCREASED
  10. IPRATROPIUM BROMIDE [Concomitant]
     Indication: DYSPNOEA
     Route: 055
  11. CRESTOR [Concomitant]
     Indication: BLOOD CHOLESTEROL ABNORMAL
     Route: 048
  12. FUROSEMIDE [Concomitant]
     Indication: SWELLING
     Dosage: 40 mg
     Route: 048
  13. POTASSIUM [Concomitant]
     Indication: SUPPLEMENTATION THERAPY
     Route: 048
  14. MORPHINE [Concomitant]
     Indication: CANCER PAIN
     Dosage: 15 mg
     Route: 048
  15. ALENDRONATE [Concomitant]
     Indication: BONE DISORDER
     Route: 048

REACTIONS (6)
  - Night sweats [Not Recovered/Not Resolved]
  - Dizziness [Not Recovered/Not Resolved]
  - Pain in extremity [Not Recovered/Not Resolved]
  - Nasopharyngitis [Not Recovered/Not Resolved]
  - Insomnia [Not Recovered/Not Resolved]
  - Restless legs syndrome [Not Recovered/Not Resolved]
